FAERS Safety Report 6877413-1 (Version None)
Quarter: 2010Q3

REPORT INFORMATION
  Report Type: 
  Country: None (occurrence: None)
  Receive Date: 20100727
  Receipt Date: 20100118
  Transmission Date: 20110219
  Serious: No
  Sender: FDA-Public Use
  Company Number: US-ABBOTT-10P-163-0620757-00

PATIENT
  Sex: Female

DRUGS (3)
  1. SYNTHROID [Suspect]
     Indication: THYROID DISORDER
     Dates: end: 20100101
  2. SYNTHROID [Suspect]
     Dates: start: 20100101
  3. NIASPAN [Concomitant]
     Indication: BLOOD CHOLESTEROL INCREASED
     Dates: start: 20100118

REACTIONS (1)
  - BLOOD THYROID STIMULATING HORMONE INCREASED [None]
